FAERS Safety Report 6925297-5 (Version None)
Quarter: 2010Q3

REPORT INFORMATION
  Report Type: 
  Country: None (occurrence: None)
  Receive Date: 20100810
  Receipt Date: 20100727
  Transmission Date: 20110219
  Serious: Yes (Life-Threatening)
  Sender: FDA-Public Use
  Company Number: 1000014128

PATIENT
  Age: 76 Year
  Sex: Female
  Weight: 48 kg

DRUGS (6)
  1. MEMANTINE HCL [Suspect]
     Dosage: 20 MG (20 MG, 1 IN 1 D), ORAL
     Route: 048
     Dates: start: 20040101, end: 20100313
  2. SEROPLEX (TABLETS) [Concomitant]
  3. RISPERDAL [Concomitant]
  4. ATENOLOL [Concomitant]
  5. AMLODIPINE [Concomitant]
  6. LASIX [Concomitant]

REACTIONS (6)
  - DYSKINESIA [None]
  - EPILEPSY [None]
  - FALL [None]
  - HICCUPS [None]
  - MYOCLONUS [None]
  - SCREAMING [None]
